FAERS Safety Report 23768533 (Version 1)
Quarter: 2024Q2

REPORT INFORMATION
  Report Type: Report from Study
  Country: US (occurrence: US)
  Receive Date: 20240422
  Receipt Date: 20240422
  Transmission Date: 20240716
  Serious: Yes (Other)
  Sender: FDA-Public Use
  Company Number: US-BAYER-2024A055634

PATIENT
  Age: 47 Year
  Sex: Female

DRUGS (1)
  1. ADEMPAS [Suspect]
     Active Substance: RIOCIGUAT
     Dosage: UNK
     Dates: start: 20140409

REACTIONS (2)
  - Emergency care [None]
  - Intra-abdominal fluid collection [Unknown]

NARRATIVE: CASE EVENT DATE: 20231215
